FAERS Safety Report 6864880-2 (Version None)
Quarter: 2010Q3

REPORT INFORMATION
  Report Type: 
  Country: None (occurrence: None)
  Receive Date: 20100720
  Receipt Date: 20100712
  Transmission Date: 20110219
  Serious: Yes (Other)
  Sender: FDA-Public Use
  Company Number: 2010SP026709

PATIENT
  Age: 73 Year
  Sex: Female

DRUGS (3)
  1. MIRTAZAPINE [Suspect]
     Indication: DEPRESSION
     Dosage: 15 MG;QD;PO, 30 MG;QD;PO
     Route: 048
     Dates: start: 20100331, end: 20100415
  2. MIRTAZAPINE [Suspect]
     Indication: DEPRESSION
     Dosage: 15 MG;QD;PO, 30 MG;QD;PO
     Route: 048
     Dates: start: 20100416, end: 20100501
  3. ZOLPIDEM TARTRATE [Concomitant]

REACTIONS (6)
  - ABASIA [None]
  - FACE OEDEMA [None]
  - HYPOAESTHESIA [None]
  - MUSCULOSKELETAL STIFFNESS [None]
  - SEROTONIN SYNDROME [None]
  - SOMNOLENCE [None]
